FAERS Safety Report 12231806 (Version 1)
Quarter: 2016Q2

REPORT INFORMATION
  Report Type: Spontaneous
  Country: US (occurrence: US)
  Receive Date: 20160401
  Receipt Date: 20160401
  Transmission Date: 20160815
  Serious: Yes (Other)
  Sender: FDA-Public Use
  Company Number: US-SA-2016SA062024

PATIENT
  Age: 51 Year
  Sex: Female

DRUGS (2)
  1. SOLOSTAR [Suspect]
     Active Substance: DEVICE
     Indication: TYPE 2 DIABETES MELLITUS
     Dates: start: 2016
  2. LANTUS SOLOSTAR [Suspect]
     Active Substance: INSULIN GLARGINE
     Indication: TYPE 2 DIABETES MELLITUS
     Dosage: DOSE: 40/50 UNITS BID
     Route: 065
     Dates: start: 2016

REACTIONS (4)
  - Gallbladder operation [Unknown]
  - Injection site pain [Unknown]
  - Product use issue [Unknown]
  - Wheelchair user [Unknown]

NARRATIVE: CASE EVENT DATE: 2016
